FAERS Safety Report 15109618 (Version 1)
Quarter: 2018Q3

REPORT INFORMATION
  Report Type: Spontaneous
  Country: US (occurrence: US)
  Receive Date: 20180705
  Receipt Date: 20180705
  Transmission Date: 20181010
  Serious: No
  Sender: FDA-Public Use
  Company Number: US-TEVA-2018-US-919046

PATIENT
  Age: 71 Year
  Sex: Male

DRUGS (1)
  1. PROAIR HFA [Suspect]
     Active Substance: ALBUTEROL SULFATE
     Indication: ATYPICAL PNEUMONIA
     Dosage: 2 PUFFS EVERY 2?4 HOURS AS NEEDED
     Route: 065
     Dates: start: 201712

REACTIONS (1)
  - Ageusia [Not Recovered/Not Resolved]
